FAERS Safety Report 20227562 (Version 7)
Quarter: 2023Q1

REPORT INFORMATION
  Report Type: Report from Study
  Country: US (occurrence: US)
  Receive Date: 20211224
  Receipt Date: 20230316
  Transmission Date: 20230418
  Serious: No
  Sender: FDA-Public Use
  Company Number: US-NOVARTISTESTPH-NVSC2021US294627

PATIENT
  Age: 3 Year
  Sex: Female

DRUGS (7)
  1. ILARIS [Suspect]
     Active Substance: CANAKINUMAB
     Indication: Pyrexia
     Dosage: 21 MG, QMO
     Route: 058
     Dates: start: 202110
  2. ILARIS [Suspect]
     Active Substance: CANAKINUMAB
     Dosage: 45 MG, EVERY 4 WEEKS
     Route: 058
     Dates: start: 20211019
  3. ILARIS [Suspect]
     Active Substance: CANAKINUMAB
     Dosage: 75 MG
     Route: 065
     Dates: start: 20220507
  4. ILARIS [Suspect]
     Active Substance: CANAKINUMAB
     Dosage: 75 MG, Q4W
     Route: 058
     Dates: start: 20211119
  5. ILARIS [Suspect]
     Active Substance: CANAKINUMAB
     Dosage: 45 MG
     Route: 065
     Dates: start: 20220604
  6. ILARIS [Suspect]
     Active Substance: CANAKINUMAB
     Dosage: 75 MG, Q4W
     Route: 058
  7. ILARIS [Suspect]
     Active Substance: CANAKINUMAB
     Dosage: 75 MG, Q4W
     Route: 058
     Dates: start: 20211119

REACTIONS (4)
  - Influenza [Unknown]
  - Weight increased [Unknown]
  - Incorrect dose administered [Unknown]
  - Wrong dose [Unknown]

NARRATIVE: CASE EVENT DATE: 20221227
